FAERS Safety Report 5040205-2 (Version None)
Quarter: 2006Q2

REPORT INFORMATION
  Report Type: 
  Country: None (occurrence: None)
  Receive Date: 20060630
  Receipt Date: 20060323
  Transmission Date: 20061013
  Serious: Yes (Other)
  Sender: FDA-Public Use
  Company Number: JP-BRISTOL-MYERS SQUIBB COMPANY-13325527

PATIENT
  Age: 66 Year
  Sex: Female

DRUGS (1)
  1. PARAPLATIN [Suspect]
     Indication: PERITONEAL CARCINOMA
     Route: 042
     Dates: start: 20050324, end: 20050324

REACTIONS (1)
  - SHOCK [None]
